FAERS Safety Report 25571041 (Version 2)
Quarter: 2025Q3

REPORT INFORMATION
  Report Type: Report from Study
  Country: US (occurrence: US)
  Receive Date: 20250717
  Receipt Date: 20250811
  Transmission Date: 20251020
  Serious: No
  Sender: ASTELLAS
  Company Number: US-ASTELLAS-2025-AER-037479

PATIENT
  Age: 56 Year
  Sex: Female

DRUGS (4)
  1. FEZOLINETANT [Suspect]
     Active Substance: FEZOLINETANT
     Indication: Menopausal symptoms
     Route: 048
     Dates: start: 202506, end: 20250719
  2. FEZOLINETANT [Suspect]
     Active Substance: FEZOLINETANT
     Route: 048
     Dates: start: 202401, end: 20250117
  3. FEZOLINETANT [Suspect]
     Active Substance: FEZOLINETANT
     Route: 048
     Dates: start: 20250727
  4. PRAVASTATIN [Concomitant]
     Active Substance: PRAVASTATIN
     Indication: Blood cholesterol increased
     Dosage: 10MG ONCE A DAY, TOOK ON AND OFF
     Route: 048
     Dates: end: 202501

REACTIONS (8)
  - Blood alkaline phosphatase increased [Recovered/Resolved]
  - Aspartate aminotransferase increased [Recovered/Resolved]
  - Alanine aminotransferase increased [Recovered/Resolved]
  - Blood urea nitrogen/creatinine ratio increased [Unknown]
  - Aspartate aminotransferase increased [Unknown]
  - Alanine aminotransferase increased [Unknown]
  - Liver disorder [Unknown]
  - Intentional product misuse [Unknown]

NARRATIVE: CASE EVENT DATE: 20250117
